FAERS Safety Report 10077228 (Version 1)
Quarter: 2014Q2

REPORT INFORMATION
  Report Type: Spontaneous
  Country: DE (occurrence: None)
  Receive Date: 20140410
  Receipt Date: 20140410
  Transmission Date: 20141212
  Serious: Yes (Death)
  Sender: FDA-Public Use
  Company Number: 2014-19328

PATIENT
  Age: 73 Year
  Sex: Male
  Weight: 88 kg

DRUGS (3)
  1. VEGF TRAP-EYE [Suspect]
     Indication: DIABETIC RETINAL OEDEMA
     Dosage: Q4
     Route: 031
     Dates: start: 20110905, end: 20140305
  2. METFORMIN (METFORMIN) [Concomitant]
  3. INSULIN (INSULIN) [Concomitant]

REACTIONS (1)
  - Myocardial infarction [None]
